FAERS Safety Report 14720384 (Version 2)
Quarter: 2018Q2

REPORT INFORMATION
  Report Type: Spontaneous
  Country: US (occurrence: FR)
  Receive Date: 20180405
  Receipt Date: 20180502
  Transmission Date: 20180711
  Serious: Yes (Other)
  Sender: FDA-Public Use
  Company Number: US-SUNOVION-2018SUN001215

PATIENT

DRUGS (5)
  1. INDACATEROL AND GLYCOPYRROLATE [Suspect]
     Active Substance: GLYCOPYRROLATE\INDACATEROL MALEATE
     Indication: CHRONIC OBSTRUCTIVE PULMONARY DISEASE
     Dosage: UNK, QD
     Route: 055
     Dates: start: 20150316
  2. FORTZAAR [Concomitant]
     Active Substance: HYDROCHLOROTHIAZIDE\LOSARTAN POTASSIUM
     Dosage: UNK
     Dates: start: 20070125
  3. HYDREA [Concomitant]
     Active Substance: HYDROXYUREA
     Dosage: UNK
     Dates: start: 201601
  4. LERCAN [Concomitant]
     Active Substance: LERCANIDIPINE
     Dosage: UNK
     Dates: start: 20061002
  5. MECIR [Concomitant]
     Active Substance: TAMSULOSIN HYDROCHLORIDE
     Dosage: UNK
     Dates: start: 201404

REACTIONS (1)
  - Extrasystoles [Unknown]
